FAERS Safety Report 12124759 (Version 3)
Quarter: 2016Q2

REPORT INFORMATION
  Report Type: Spontaneous
  Country: US (occurrence: US)
  Receive Date: 20160229
  Receipt Date: 20160418
  Transmission Date: 20160815
  Serious: Yes (Other)
  Sender: FDA-Public Use
  Company Number: US-009507513-1602USA011390

PATIENT
  Age: 49 Year
  Sex: Male

DRUGS (2)
  1. TEMODAR [Suspect]
     Active Substance: TEMOZOLOMIDE
     Dosage: 100 MG/M2 AT 15 ML/MIN FOR 45 MIN IN TWO CONSECUTIVE DAYS; CYCLE 2
     Route: 013
  2. TEMODAR [Suspect]
     Active Substance: TEMOZOLOMIDE
     Indication: GLIOBLASTOMA MULTIFORME
     Dosage: 100 MG/M2 AT 15 ML/MIN FOR 45 MIN IN TWO CONSECUTIVE DAYS; CYCLE 1
     Route: 013

REACTIONS (5)
  - Hypertensive crisis [Recovered/Resolved]
  - Incorrect route of drug administration [Unknown]
  - Facial paralysis [Recovered/Resolved]
  - Heart rate increased [Recovered/Resolved]
  - Rash [Recovered/Resolved]
